FAERS Safety Report 7280643-0 (Version None)
Quarter: 2011Q1

REPORT INFORMATION
  Report Type: 
  Country: None (occurrence: None)
  Receive Date: 20110208
  Receipt Date: 20110204
  Transmission Date: 20110831
  Serious: Yes (Hospitalization)
  Sender: FDA-Public Use
  Company Number: A0779048A

PATIENT
  Age: 70 Year
  Sex: Female
  Weight: 86.8 kg

DRUGS (3)
  1. GLUCOTROL [Concomitant]
  2. GLUCOPHAGE [Concomitant]
  3. AVANDIA [Suspect]
     Indication: DIABETES MELLITUS
     Dosage: 8MG PER DAY
     Route: 048
     Dates: start: 20000610, end: 20051001

REACTIONS (1)
  - MYOCARDIAL INFARCTION [None]
